FAERS Safety Report 8271655-9 (Version None)
Quarter: 2012Q1

REPORT INFORMATION
  Report Type: 
  Country: None (occurrence: None)
  Receive Date: 20120327
  Receipt Date: 20100113
  Transmission Date: 20120608
  Serious: Yes (Other)
  Sender: FDA-Public Use
  Company Number: PHEH2009US18271

PATIENT
  Age: 59 Year
  Sex: Female
  Weight: 54.4 kg

DRUGS (14)
  1. SERTRALINE HYDROCHLORIDE [Concomitant]
  2. AMBIEN [Concomitant]
  3. GLEEVEC [Suspect]
     Indication: LEUKAEMIA
     Dosage: 100 MG, TID, ORAL
     Route: 048
     Dates: start: 20090901
  4. COREG [Concomitant]
  5. PLAVIX [Concomitant]
  6. FUROSEMDE (FUROSEMIDE) [Concomitant]
  7. VITAMIN B12 [Concomitant]
  8. COZAAR [Concomitant]
  9. CRESTOR [Concomitant]
  10. NEURONTIN [Concomitant]
  11. TYLENOL PM (DIPHENHYDRAMINE,PARACETAMOL) [Suspect]
  12. ACTOS /CAN/ (PIOGLITAZONE HYDROCHLORIDE) [Concomitant]
  13. POTASSIUM CHLORIDE [Concomitant]
  14. FERROUS SULFATE TAB [Concomitant]

REACTIONS (5)
  - PNEUMONIA [None]
  - MUSCLE SPASMS [None]
  - ANAEMIA [None]
  - PYREXIA [None]
  - MEDICATION ERROR [None]
